FAERS Safety Report 4940595-2 (Version None)
Quarter: 2006Q1

REPORT INFORMATION
  Report Type: 
  Country: None (occurrence: None)
  Receive Date: 20060201
  Receipt Date: 20051128
  Transmission Date: 20060701
  Serious: No
  Sender: FDA-Public Use
  Company Number: 2005PV004916

PATIENT
  Age: 59 Year
  Sex: Male
  Weight: 81.6475 kg

DRUGS (5)
  1. BYETTA [Suspect]
     Indication: DIABETES MELLITUS NON-INSULIN-DEPENDENT
     Dosage: 10 MCG; QPM; SC;  5 MCG; QPM; SC;  5 MCG; BID; SC;  10 MCG; BID; SC;  5 MCG; BID; SC
     Route: 058
     Dates: start: 20050824, end: 20050923
  2. BYETTA [Suspect]
     Indication: DIABETES MELLITUS NON-INSULIN-DEPENDENT
     Dosage: 10 MCG; QPM; SC;  5 MCG; QPM; SC;  5 MCG; BID; SC;  10 MCG; BID; SC;  5 MCG; BID; SC
     Route: 058
     Dates: start: 20050924, end: 20051008
  3. BYETTA [Suspect]
     Indication: DIABETES MELLITUS NON-INSULIN-DEPENDENT
     Dosage: 10 MCG; QPM; SC;  5 MCG; QPM; SC;  5 MCG; BID; SC;  10 MCG; BID; SC;  5 MCG; BID; SC
     Route: 058
     Dates: start: 20051009, end: 20051128
  4. BYETTA [Suspect]
     Indication: DIABETES MELLITUS NON-INSULIN-DEPENDENT
     Dosage: 10 MCG; QPM; SC;  5 MCG; QPM; SC;  5 MCG; BID; SC;  10 MCG; BID; SC;  5 MCG; BID; SC
     Route: 058
     Dates: start: 20051129
  5. BYETTA [Suspect]
     Indication: DIABETES MELLITUS NON-INSULIN-DEPENDENT
     Dosage: 10 MCG; QPM; SC;  5 MCG; QPM; SC;  5 MCG; BID; SC;  10 MCG; BID; SC;  5 MCG; BID; SC
     Route: 058
     Dates: start: 20051129

REACTIONS (3)
  - DECREASED APPETITE [None]
  - NAUSEA [None]
  - WEIGHT DECREASED [None]
